FAERS Safety Report 24202705 (Version 2)
Quarter: 2024Q3

REPORT INFORMATION
  Report Type: Report from Study
  Country: US (occurrence: US)
  Receive Date: 20240813
  Receipt Date: 20240916
  Transmission Date: 20241016
  Serious: No
  Sender: ACADIA PHARMACEUTICALS
  Company Number: US-ACADIA PHARMACEUTICALS INC.-ACA-2024-PIM-003789

PATIENT
  Sex: Female

DRUGS (4)
  1. NUPLAZID [Suspect]
     Active Substance: PIMAVANSERIN TARTRATE
     Indication: Parkinson^s disease
     Dosage: 34 MILLIGRAM, QD
     Route: 048
     Dates: start: 20240403
  2. DROXIDOPA [Concomitant]
     Active Substance: DROXIDOPA
     Dosage: 300 MILLIGRAM
  3. INBRIJA [Concomitant]
     Active Substance: LEVODOPA
     Dosage: 42 MILLIGRAM
  4. GOCOVRI [Concomitant]
     Active Substance: AMANTADINE
     Dosage: 68.5 MILLIGRAM

REACTIONS (2)
  - Dizziness postural [Not Recovered/Not Resolved]
  - Abdominal pain upper [Unknown]
